FAERS Safety Report 4284780-4 (Version None)
Quarter: 2004Q1

REPORT INFORMATION
  Report Type: 
  Country: None (occurrence: None)
  Receive Date: 20040202
  Receipt Date: 20040119
  Transmission Date: 20041129
  Serious: Yes (Life-Threatening)
  Sender: FDA-Public Use
  Company Number: 2003AP02896

PATIENT
  Age: 51 Year
  Sex: Male

DRUGS (14)
  1. IRESSA [Suspect]
     Indication: NON-SMALL CELL LUNG CANCER
     Dosage: 250 MG DAILY PO
     Route: 048
     Dates: start: 20030718, end: 20030806
  2. VOLTAREN [Concomitant]
  3. ESTAZOLAM [Concomitant]
  4. SELEBEX [Concomitant]
  5. NOVAMIN [Concomitant]
  6. GASTER [Concomitant]
  7. BIOFERMIN [Concomitant]
  8. PHYSIO [Concomitant]
  9. KADIAN ^ZENECA^ [Concomitant]
  10. ZYPREXA [Concomitant]
  11. NAIXAN [Concomitant]
  12. CISPLATIN [Concomitant]
  13. VINORELBINE TARTRATE [Concomitant]
  14. RADIOTHERAPY [Concomitant]

REACTIONS (8)
  - ABDOMINAL DISCOMFORT [None]
  - CONSTIPATION [None]
  - DIARRHOEA [None]
  - DYSPNOEA [None]
  - HYPOXIA [None]
  - INTERSTITIAL LUNG DISEASE [None]
  - MELAENA [None]
  - VIRAL INFECTION [None]
